FAERS Safety Report 13931203 (Version 1)
Quarter: 2017Q3

REPORT INFORMATION
  Report Type: Spontaneous
  Country: US (occurrence: US)
  Receive Date: 20170902
  Receipt Date: 20170902
  Transmission Date: 20171127
  Serious: Yes (Other)
  Sender: FDA-Public Use
  Company Number: US-CELGENEUS-USA-20170808061

PATIENT
  Age: 72 Year
  Sex: Female
  Weight: 68.1 kg

DRUGS (1)
  1. REVLIMID [Suspect]
     Active Substance: LENALIDOMIDE
     Indication: PLASMA CELL MYELOMA
     Dosage: 25 MILLIGRAM
     Route: 048
     Dates: start: 201707

REACTIONS (6)
  - Peripheral swelling [Recovered/Resolved]
  - Constipation [Unknown]
  - Fall [Unknown]
  - Loss of consciousness [Unknown]
  - Cold sweat [Unknown]
  - Hypotension [Unknown]

NARRATIVE: CASE EVENT DATE: 2017
